FAERS Safety Report 24090267 (Version 1)
Quarter: 2024Q3

REPORT INFORMATION
  Report Type: Spontaneous
  Country: US (occurrence: None)
  Receive Date: 20240712
  Receipt Date: 20240712
  Transmission Date: 20241016
  Serious: Yes (Other)
  Sender: Public
  Company Number: None

PATIENT
  Age: 37 Year
  Sex: Female
  Weight: 75.3 kg

DRUGS (1)
  1. ENBREL [Suspect]
     Active Substance: BENZYL ALCOHOL\ETANERCEPT
     Indication: Rheumatoid arthritis
     Dosage: 1 ML WEEKLY SUBCUTANEOUS
     Route: 058
     Dates: start: 202308, end: 202406

REACTIONS (1)
  - Seizure [None]

NARRATIVE: CASE EVENT DATE: 20240601
